FAERS Safety Report 23311699 (Version 1)
Quarter: 2023Q4

REPORT INFORMATION
  Report Type: Spontaneous
  Country: BA (occurrence: BA)
  Receive Date: 20231219
  Receipt Date: 20231219
  Transmission Date: 20240109
  Serious: Yes (Other)
  Sender: FDA-Public Use
  Company Number: BA-CELLTRION INC.-2023BA024205

PATIENT

DRUGS (11)
  1. INFLIXIMAB [Suspect]
     Active Substance: INFLIXIMAB
     Indication: Colitis ulcerative
     Dosage: UNK
     Route: 065
     Dates: start: 2021
  2. PLAQUENIL [Concomitant]
     Active Substance: HYDROXYCHLOROQUINE SULFATE
     Dosage: 200 MILLIGRAM 1X1 TABLET IN THE EVENING
  3. CALCIUM CITRATE\CHOLECALCIFEROL\MENATETRENONE [Concomitant]
     Active Substance: CALCIUM CITRATE\CHOLECALCIFEROL\MENATETRENONE
     Dosage: 2X2 TABLET IN THE EVENING
  4. PANTOPRAZOLE SODIUM [Concomitant]
     Active Substance: PANTOPRAZOLE SODIUM
     Dosage: 20MG 1X1 IN THE MORNING
  5. MESALAMINE [Concomitant]
     Active Substance: MESALAMINE
     Dosage: 500MG 4X2 TABLETS
  6. MESALAMINE [Concomitant]
     Active Substance: MESALAMINE
     Dosage: AS NEEDED
  7. FOLAN [FOLIC ACID] [Concomitant]
     Dosage: 5 MILLIGRAM 1X1
  8. BEVIPLEX [ADENOSINE PHOSPHATE;BIOTIN;CALCIUM PANTOTHENATE;CYANOCOBALAM [Concomitant]
     Dosage: 3X1 TBL
  9. ASCORBIC ACID\CALCIUM CARBONATE [Concomitant]
     Active Substance: ASCORBIC ACID\CALCIUM CARBONATE
     Dosage: 100MG 1X1
  10. AREDIA [Concomitant]
     Active Substance: PAMIDRONATE DISODIUM
     Route: 042
  11. IBOLEX [Concomitant]
     Indication: Pain
     Dosage: AS NEEDED

REACTIONS (2)
  - Colitis ulcerative [Unknown]
  - Drug specific antibody present [Unknown]

NARRATIVE: CASE EVENT DATE: 20221001
